FAERS Safety Report 25230570 (Version 2)
Quarter: 2025Q3

REPORT INFORMATION
  Report Type: Spontaneous
  Country: US (occurrence: None)
  Receive Date: 20250423
  Receipt Date: 20250721
  Transmission Date: 20251021
  Serious: No
  Sender: INCYTE
  Company Number: US-INCYTE CORPORATION-2025IN004001

PATIENT
  Age: 75 Year
  Weight: 73.469 kg

DRUGS (2)
  1. JAKAFI [Suspect]
     Active Substance: RUXOLITINIB
     Indication: Myeloproliferative neoplasm
     Dosage: 20 MILLIGRAM, BID
  2. MINERALS\VITAMINS [Concomitant]
     Active Substance: MINERALS\VITAMINS
     Indication: Product used for unknown indication
     Route: 065

REACTIONS (6)
  - Splenomegaly [Unknown]
  - Diarrhoea [Unknown]
  - Constipation [Unknown]
  - Off label use [Unknown]
  - Impaired healing [Unknown]
  - Haemorrhage [Unknown]
